FAERS Safety Report 6070059-7 (Version None)
Quarter: 2009Q1

REPORT INFORMATION
  Report Type: 
  Country: None (occurrence: None)
  Receive Date: 20090209
  Receipt Date: 20090204
  Transmission Date: 20090719
  Serious: Yes (Death)
  Sender: FDA-Public Use
  Company Number: PHEH2009US00812

PATIENT
  Sex: Male
  Weight: 75 kg

DRUGS (8)
  1. EXJADE [Suspect]
     Indication: IRON OVERLOAD
     Dosage: 2250 MG, QD
     Route: 048
     Dates: start: 20071023, end: 20080411
  2. M.V.I. [Concomitant]
     Indication: SUPPLEMENTATION THERAPY
     Dosage: QD
     Route: 048
  3. SYNTHROID [Concomitant]
     Indication: HYPOTHYROIDISM
     Dosage: 0.137 MG, QD
     Route: 048
  4. ASPIRIN [Concomitant]
     Indication: CARDIAC DISORDER
     Dosage: 325 MG, QD
     Route: 048
  5. NIASPAN [Concomitant]
     Indication: CARDIAC DISORDER
     Dosage: 1500 MG, QD
     Route: 048
  6. METOPROLOL TARTRATE [Concomitant]
     Indication: ATRIAL FIBRILLATION
     Dosage: 50 MG, QD
     Route: 048
  7. OMEPRAZOLE [Concomitant]
     Indication: REFLUX OESOPHAGITIS
     Dosage: 20 MG, BID
     Route: 048
  8. DIGOXIN [Concomitant]
     Indication: CARDIAC DISORDER
     Dosage: 0.125 MG, QD
     Route: 048

REACTIONS (6)
  - ABDOMINAL DISCOMFORT [None]
  - DEATH [None]
  - DIARRHOEA [None]
  - DISEASE PROGRESSION [None]
  - DRUG INEFFECTIVE [None]
  - MUSCLE SPASMS [None]
